FAERS Safety Report 5484030-7 (Version None)
Quarter: 2007Q4

REPORT INFORMATION
  Report Type: 
  Country: None (occurrence: None)
  Receive Date: 20071009
  Receipt Date: 20071009
  Transmission Date: 20080405
  Serious: Yes (Hospitalization)
  Sender: FDA-Public Use
  Company Number: None

PATIENT
  Sex: Female
  Weight: 60.3 kg

DRUGS (2)
  1. CISPLATIN [Suspect]
     Dosage: 78.5 MG
  2. TOPOTECAN [Suspect]
     Dosage: 3.54 MG

REACTIONS (5)
  - HAEMOGLOBIN ABNORMAL [None]
  - NEUTROPHIL COUNT ABNORMAL [None]
  - PLATELET COUNT ABNORMAL [None]
  - VAGINAL HAEMORRHAGE [None]
  - WHITE BLOOD CELL COUNT ABNORMAL [None]
